FAERS Safety Report 5512949-7 (Version None)
Quarter: 2007Q4

REPORT INFORMATION
  Report Type: 
  Country: None (occurrence: None)
  Receive Date: 20071112
  Receipt Date: 20071106
  Transmission Date: 20080405
  Serious: Yes (Other)
  Sender: FDA-Public Use
  Company Number: ES-MERCK-0711ESP00010

PATIENT
  Age: 61 Year
  Sex: Male

DRUGS (1)
  1. ZETIA [Suspect]
     Indication: DYSLIPIDAEMIA
     Route: 048
     Dates: start: 20070416, end: 20070606

REACTIONS (3)
  - ASTHENIA [None]
  - LIP OEDEMA [None]
  - TONGUE OEDEMA [None]
